FAERS Safety Report 6611607-5 (Version None)
Quarter: 2010Q1

REPORT INFORMATION
  Report Type: 
  Country: None (occurrence: None)
  Receive Date: 20100218
  Receipt Date: 20090416
  Transmission Date: 20100710
  Serious: Yes (Other)
  Sender: FDA-Public Use
  Company Number: 2009178907

PATIENT
  Sex: Female
  Weight: 127 kg

DRUGS (1)
  1. DAYPRO [Suspect]
     Indication: BACK PAIN
     Dosage: 600 MG

REACTIONS (3)
  - DYSPNOEA [None]
  - HYPERSENSITIVITY [None]
  - THROAT TIGHTNESS [None]
